FAERS Safety Report 4943887-6 (Version None)
Quarter: 2006Q1

REPORT INFORMATION
  Report Type: 
  Country: None (occurrence: None)
  Receive Date: 20060310
  Receipt Date: 20060227
  Transmission Date: 20060701
  Serious: Yes (Hospitalization, Other)
  Sender: FDA-Public Use
  Company Number: 2006028765

PATIENT
  Age: 81 Year
  Sex: Female
  Weight: 48.9885 kg

DRUGS (9)
  1. LIPITOR [Suspect]
     Indication: ILL-DEFINED DISORDER
     Dosage: 20 MG (20 MG, 1 IN 1 D), ORAL/12 YEARS AGO
     Route: 048
  2. WARFARIN SODIUM [Suspect]
     Indication: THROMBOSIS
     Dates: start: 20051001
  3. VITAMIN E [Concomitant]
  4. CALCIUM (CALCIUM) [Concomitant]
  5. ASPIRIN [Concomitant]
  6. LASIX [Concomitant]
  7. NIACIN [Concomitant]
  8. COREG [Concomitant]
  9. LISINOPRIL [Concomitant]

REACTIONS (10)
  - ANOREXIA [None]
  - CEREBRAL HAEMORRHAGE [None]
  - CONCUSSION [None]
  - DIFFICULTY IN WALKING [None]
  - FALL [None]
  - FATIGUE [None]
  - MYOCARDIAL INFARCTION [None]
  - NOSOCOMIAL INFECTION [None]
  - THROMBOSIS [None]
  - WEIGHT DECREASED [None]
